FAERS Safety Report 25966381 (Version 1)
Quarter: 2025Q4

REPORT INFORMATION
  Report Type: Spontaneous
  Country: JP (occurrence: JP)
  Receive Date: 20251028
  Receipt Date: 20251028
  Transmission Date: 20260117
  Serious: Yes (Hospitalization, Other)
  Sender: AMGEN
  Company Number: JP-DSJP-DS-2025-123399-

PATIENT
  Age: 78 Year
  Sex: Female

DRUGS (9)
  1. BEVACIZUMAB [Suspect]
     Active Substance: BEVACIZUMAB
     Indication: Colon cancer
     Dosage: UNK
     Route: 065
  2. BEVACIZUMAB [Suspect]
     Active Substance: BEVACIZUMAB
     Indication: Metastases to liver
  3. FLUOROURACIL [Concomitant]
     Active Substance: FLUOROURACIL
     Indication: Colon cancer
     Dosage: UNK
     Route: 065
  4. FLUOROURACIL [Concomitant]
     Active Substance: FLUOROURACIL
     Indication: Metastases to liver
  5. Levofolinate [Concomitant]
     Indication: Colon cancer
     Dosage: UNK
     Route: 065
  6. Levofolinate [Concomitant]
     Indication: Metastases to liver
  7. OXALIPLATIN [Concomitant]
     Active Substance: OXALIPLATIN
     Indication: Colon cancer
     Dosage: UNK
     Route: 065
  8. OXALIPLATIN [Concomitant]
     Active Substance: OXALIPLATIN
     Indication: Metastases to liver
  9. CETUXIMAB [Concomitant]
     Active Substance: CETUXIMAB
     Indication: Metastases to liver

REACTIONS (7)
  - Gastrointestinal anastomotic leak [Recovered/Resolved]
  - Gastrointestinal perforation [Recovered/Resolved]
  - Failure to anastomose [Recovered/Resolved]
  - Fungal infection [Unknown]
  - Procedural haemorrhage [Unknown]
  - Pulmonary thrombosis [Unknown]
  - Metastases to liver [Unknown]
